FAERS Safety Report 20743222 (Version 1)
Quarter: 2022Q2

REPORT INFORMATION
  Report Type: Spontaneous
  Country: US (occurrence: US)
  Receive Date: 20220425
  Receipt Date: 20220425
  Transmission Date: 20220721
  Serious: No
  Sender: FDA-Public Use
  Company Number: US-ELI_LILLY_AND_COMPANY-US202204008462

PATIENT
  Sex: Female

DRUGS (1)
  1. FLUOXETINE HYDROCHLORIDE [Suspect]
     Active Substance: FLUOXETINE HYDROCHLORIDE
     Indication: Product used for unknown indication
     Dosage: 40 MG, UNKNOWN
     Route: 065
     Dates: start: 20220331

REACTIONS (4)
  - Gastrooesophageal reflux disease [Unknown]
  - Burning sensation [Unknown]
  - Oesophageal pain [Unknown]
  - Dyspepsia [Unknown]
